FAERS Safety Report 6644521-X (Version None)
Quarter: 2010Q1

REPORT INFORMATION
  Report Type: 
  Country: None (occurrence: None)
  Receive Date: 20100304
  Receipt Date: 20090903
  Transmission Date: 20100710
  Serious: Yes (Other)
  Sender: FDA-Public Use
  Company Number: US-003385

PATIENT
  Age: 60 Year
  Sex: Male
  Weight: 68 kg

DRUGS (2)
  1. ISOVUE-300 [Suspect]
     Indication: CEREBROVASCULAR ACCIDENT
     Dosage: 100ML ONCE INTRAVENOUS (NOT OTHERWISE SPECIFIED)
     Dates: start: 20090902, end: 20090902
  2. ISOVUE-300 [Suspect]
     Indication: COMPUTERISED TOMOGRAM HEAD
     Dosage: 100ML ONCE INTRAVENOUS (NOT OTHERWISE SPECIFIED)
     Dates: start: 20090902, end: 20090902

REACTIONS (1)
  - CHEST PAIN [None]
